FAERS Safety Report 10558858 (Version 3)
Quarter: 2015Q1

REPORT INFORMATION
  Report Type: Spontaneous
  Country: GB (occurrence: GB)
  Receive Date: 20141101
  Receipt Date: 20150220
  Transmission Date: 20150720
  Serious: Yes (Hospitalization, Other)
  Sender: FDA-Public Use
  Company Number: GB-AUROBINDO-AUR-APL-2014-11272

PATIENT
  Age: 52 Year
  Sex: Male
  Weight: 104 kg

DRUGS (7)
  1. SIMVASTATIN 20MG [Suspect]
     Active Substance: SIMVASTATIN
     Dosage: 40 MG, ONCE A DAY
     Route: 048
     Dates: start: 20140819, end: 20140819
  2. AMISULPRIDE [Concomitant]
     Active Substance: AMISULPRIDE
     Indication: PSYCHOTIC DISORDER
     Dosage: 600 MG, ONCE A DAY
     Route: 048
  3. LANSOPRAZOLE. [Concomitant]
     Active Substance: LANSOPRAZOLE
     Indication: GASTROOESOPHAGEAL REFLUX DISEASE
     Dosage: 15 MG, ONCE A DAY
     Route: 065
     Dates: start: 20121116
  4. PROCYCLIDINE [Concomitant]
     Active Substance: PROCYCLIDINE
     Indication: EXTRAPYRAMIDAL DISORDER
     Dosage: 10 MG, ONCE A DAY
     Route: 048
  5. SIMVASTATIN 20MG [Suspect]
     Active Substance: SIMVASTATIN
     Indication: DYSLIPIDAEMIA
     Dosage: 20 MG, UNK
     Route: 065
     Dates: start: 20120911
  6. CLOZARIL [Suspect]
     Active Substance: CLOZAPINE
     Indication: PSYCHOTIC DISORDER
     Dosage: UNK
     Route: 048
     Dates: start: 20110302
  7. CLOZARIL [Suspect]
     Active Substance: CLOZAPINE
     Indication: SCHIZOPHRENIA
     Dosage: 375 MG, ONCE A DAY
     Route: 048
     Dates: start: 20120127, end: 20140822

REACTIONS (4)
  - Hepatitis A [Recovered/Resolved]
  - Hepatitis E [Unknown]
  - Cholecystitis chronic [Recovered/Resolved]
  - Hepatic enzyme increased [Recovered/Resolved]

NARRATIVE: CASE EVENT DATE: 20140822
